FAERS Safety Report 15273011 (Version 1)
Quarter: 2018Q3

REPORT INFORMATION
  Report Type: Spontaneous
  Country: US (occurrence: US)
  Receive Date: 20180813
  Receipt Date: 20180813
  Transmission Date: 20181010
  Serious: No
  Sender: FDA-Public Use
  Company Number: US-PURDUE-USA-2018-0143791

PATIENT
  Age: 58 Year
  Sex: Male

DRUGS (4)
  1. BUTRANS [Suspect]
     Active Substance: BUPRENORPHINE
     Dosage: 7.5 MG/DL, WEEKLY
     Route: 062
  2. BUTRANS [Suspect]
     Active Substance: BUPRENORPHINE
     Indication: PAIN
     Dosage: 5 MG/DL, WEEKLY
     Route: 062
     Dates: start: 201712, end: 201801
  3. BUTRANS [Suspect]
     Active Substance: BUPRENORPHINE
     Dosage: 15 MG/DL, WEEKLY
     Route: 062
  4. BUTRANS [Suspect]
     Active Substance: BUPRENORPHINE
     Dosage: 10 MG/DL, WEEKLY
     Route: 062

REACTIONS (3)
  - Nausea [Recovered/Resolved]
  - Inadequate analgesia [Recovered/Resolved]
  - Dizziness [Recovered/Resolved]

NARRATIVE: CASE EVENT DATE: 201712
